FAERS Safety Report 22248074 (Version 1)
Quarter: 2023Q2

REPORT INFORMATION
  Report Type: Spontaneous
  Country: DE (occurrence: DE)
  Receive Date: 20230425
  Receipt Date: 20230425
  Transmission Date: 20230722
  Serious: No
  Sender: FDA-Public Use
  Company Number: None

PATIENT
  Age: 20 Month
  Sex: Male
  Weight: 15 kg

DRUGS (3)
  1. LACOSAMIDE [Suspect]
     Active Substance: LACOSAMIDE
     Indication: Respiratory distress
     Dosage: 55 MILLIGRAM, BID (EVERY 0.5 DAY)
     Route: 065
     Dates: start: 202202, end: 20230303
  2. LACOSAMIDE [Suspect]
     Active Substance: LACOSAMIDE
     Indication: Seizure prophylaxis
  3. LACOSAMIDE [Suspect]
     Active Substance: LACOSAMIDE
     Indication: Emotional disorder of childhood

REACTIONS (4)
  - Apathy [Recovered/Resolved]
  - Hyporeflexia [Recovered/Resolved]
  - Hypotonia [Recovered/Resolved]
  - Movement disorder [Recovered/Resolved]

NARRATIVE: CASE EVENT DATE: 20220818
